FAERS Safety Report 24305830 (Version 1)
Quarter: 2024Q3

REPORT INFORMATION
  Report Type: Spontaneous
  Country: BR (occurrence: BR)
  Receive Date: 20240911
  Receipt Date: 20240911
  Transmission Date: 20241017
  Serious: Yes (Hospitalization, Other)
  Sender: RANBAXY
  Company Number: BR-SUN PHARMACEUTICAL INDUSTRIES LTD-2024R1-466943

PATIENT
  Age: 20 Year
  Sex: Male
  Weight: 51 kg

DRUGS (1)
  1. AMPHOTERICIN B [Suspect]
     Active Substance: AMPHOTERICIN B
     Indication: Abdominal pain
     Dosage: 150 MILLIGRAM, DAILY
     Route: 065

REACTIONS (1)
  - Condition aggravated [Unknown]
